FAERS Safety Report 4487623-9 (Version None)
Quarter: 2004Q4

REPORT INFORMATION
  Report Type: 
  Country: None (occurrence: None)
  Receive Date: 20041027
  Receipt Date: 20041027
  Transmission Date: 20050328
  Serious: Yes (Other)
  Sender: FDA-Public Use
  Company Number: None

PATIENT
  Age: 29 Year
  Sex: Female
  Weight: 63.5036 kg

DRUGS (1)
  1. CELEXA [Suspect]
     Indication: PANIC ATTACK
     Dosage: 20 MG DAY ORAL
     Route: 048

REACTIONS (4)
  - CONDITION AGGRAVATED [None]
  - FEELING ABNORMAL [None]
  - PANIC ATTACK [None]
  - SUICIDAL IDEATION [None]
